FAERS Safety Report 6830847-3 (Version None)
Quarter: 2010Q3

REPORT INFORMATION
  Report Type: 
  Country: None (occurrence: None)
  Receive Date: 20100709
  Receipt Date: 20100709
  Transmission Date: 20110219
  Serious: Yes (Hospitalization)
  Sender: FDA-Public Use
  Company Number: None

PATIENT
  Age: 63 Year
  Sex: Male

DRUGS (2)
  1. LORAZEPAM [Suspect]
     Indication: HALLUCINATION
     Dosage: 1 MG ONCE PO
     Route: 048
     Dates: start: 20100325, end: 20100325
  2. METHADONE HCL [Suspect]
     Dosage: 30 MG TID PO
     Route: 048
     Dates: start: 20100311, end: 20100325

REACTIONS (2)
  - SEDATION [None]
  - SOMNOLENCE [None]
